FAERS Safety Report 21571469 (Version 1)
Quarter: 2022Q4

REPORT INFORMATION
  Report Type: Spontaneous
  Country: US (occurrence: None)
  Receive Date: 20221109
  Receipt Date: 20221109
  Transmission Date: 20230113
  Serious: No
  Sender: FDA-Public Use
  Company Number: 2022A318483

PATIENT
  Age: 29132 Day
  Sex: Male
  Weight: 68.9 kg

DRUGS (2)
  1. FASENRA [Suspect]
     Active Substance: BENRALIZUMAB
     Indication: Respiratory disorder
     Dosage: 1 INJ EVERY 30 DAYS X 3 MONTHS THEN 1 INJ EVERY 8 WEEKS.
     Route: 058
     Dates: start: 20220602
  2. FASENRA [Suspect]
     Active Substance: BENRALIZUMAB
     Indication: Respiratory disorder
     Route: 058
     Dates: start: 20220806

REACTIONS (5)
  - Full blood count abnormal [Unknown]
  - Productive cough [Unknown]
  - Dyspnoea [Unknown]
  - Product distribution issue [Unknown]
  - Product dose omission issue [Unknown]

NARRATIVE: CASE EVENT DATE: 20220911
